FAERS Safety Report 7759506-X (Version None)
Quarter: 2011Q3

REPORT INFORMATION
  Report Type: 
  Country: None (occurrence: None)
  Receive Date: 20110919
  Receipt Date: 20110919
  Transmission Date: 20111222
  Serious: Yes (Life-Threatening)
  Sender: FDA-Public Use
  Company Number: None

PATIENT
  Age: 55 Year
  Sex: Female
  Weight: 63.502 kg

DRUGS (1)
  1. AVONEX [Suspect]
     Indication: MULTIPLE SCLEROSIS
     Dosage: 30
     Route: 030
     Dates: start: 20080525, end: 20110818

REACTIONS (6)
  - DEPRESSION [None]
  - CONTUSION [None]
  - AFFECTIVE DISORDER [None]
  - TREMOR [None]
  - BLOOD COUNT ABNORMAL [None]
  - INSOMNIA [None]
